FAERS Safety Report 15028976 (Version 1)
Quarter: 2018Q2

REPORT INFORMATION
  Report Type: Spontaneous
  Country: DE (occurrence: DE)
  Receive Date: 20180619
  Receipt Date: 20180619
  Transmission Date: 20180711
  Serious: Yes (Hospitalization)
  Sender: FDA-Public Use
  Company Number: DE-TEVA-2018-DE-908671

PATIENT
  Age: 66 Year
  Sex: Male
  Weight: 86 kg

DRUGS (12)
  1. CARBOPLATIN. [Suspect]
     Active Substance: CARBOPLATIN
     Dosage: 92 MG / DAY, SCHEME, SOLUTION FOR INJECTION / INFUSION
     Route: 042
  2. ASS 100MG [Concomitant]
     Active Substance: ASPIRIN
     Dosage: 100 MG, 1-0-0-0, TABLET
     Route: 048
  3. NEBILET [Concomitant]
     Active Substance: NEBIVOLOL
     Dosage: 5 MG, 0.5-0-0-0, TABLET
     Route: 048
  4. NOVALGIN [Concomitant]
     Dosage: 40 GTT, 1-1-1-1, DROPS
     Route: 048
  5. RAMIPRIL/HYDROCHLOROTHIAZIDE [Concomitant]
     Active Substance: HYDROCHLOROTHIAZIDE\RAMIPRIL
     Dosage: 5|25 MG, 1-0-0-0, TABLET
     Route: 048
  6. VERGENTAN 50MG [Concomitant]
     Dosage: 50 MG, SCHEMA, TABLET
     Route: 048
  7. XYLOCAINE [Concomitant]
     Active Substance: LIDOCAINE HYDROCHLORIDE
     Dosage: REQUIREMENT
  8. MOVICOL [Concomitant]
     Active Substance: POLYETHYLENE GLYCOL 3350\POTASSIUM CHLORIDE\SODIUM BICARBONATE\SODIUM CHLORIDE
     Dosage: 13.125 | 0.35 | 0.18 | 0.05 G, 1-0-0-0, BAG
     Route: 048
  9. FENTANYL-1A PHARMA 37,5UG/H MATRIXPFLASTER [Concomitant]
     Dosage: 37.5 UG / H, SCHEME, PATCH TRANSDERMAL
     Route: 062
  10. RANITIDIN [Concomitant]
     Active Substance: RANITIDINE HYDROCHLORIDE
     Dosage: 150 MG, 0-0-1-0, TABLET
     Route: 048
  11. INEGY 10MG/80MG [Concomitant]
     Dosage: 10|80 MG, 0-0-1-0, TABLET
     Route: 048
  12. ONDANSETRON [Concomitant]
     Active Substance: ONDANSETRON
     Dosage: 8 MG, SCHEME, TABLET
     Route: 048

REACTIONS (4)
  - Dyspnoea [Unknown]
  - Productive cough [Unknown]
  - Cough [Unknown]
  - Hypertension [Unknown]
